FAERS Safety Report 10576312 (Version 3)
Quarter: 2014Q4

REPORT INFORMATION
  Report Type: Spontaneous
  Country: BR (occurrence: None)
  Receive Date: 20141107
  Receipt Date: 20141125
  Transmission Date: 20150529
  Serious: Yes (Life-Threatening, Hospitalization)
  Sender: FDA-Public Use
  Company Number: BR2014GSK015878

PATIENT
  Age: 0 Day
  Sex: Male
  Weight: 1.6 kg

DRUGS (2)
  1. LAMIVUDINE AND ZIDOVUDINE [Suspect]
     Active Substance: LAMIVUDINE\ZIDOVUDINE
     Indication: HIV INFECTION
     Route: 064
     Dates: start: 20140808, end: 20141011
  2. RALTEGRAVIR [Suspect]
     Active Substance: RALTEGRAVIR
     Indication: HIV INFECTION
     Dosage: 400MG, CYC, TRANSPLACENTAL
     Route: 064
     Dates: start: 20140808, end: 20141011

REACTIONS (4)
  - Congenital syphilis [None]
  - Maternal drugs affecting foetus [None]
  - Low birth weight baby [None]
  - Foetal exposure during pregnancy [None]

NARRATIVE: CASE EVENT DATE: 20141012
